FAERS Safety Report 15454081 (Version 1)
Quarter: 2018Q4

REPORT INFORMATION
  Report Type: Spontaneous
  Country: JP (occurrence: JP)
  Receive Date: 20181002
  Receipt Date: 20181002
  Transmission Date: 20190204
  Serious: Yes (Death, Hospitalization)
  Sender: FDA-Public Use
  Company Number: JP-ROCHE-2191927

PATIENT
  Age: 83 Year
  Sex: Female

DRUGS (1)
  1. RITUXAN [Suspect]
     Active Substance: RITUXIMAB
     Indication: ANTI-NEUTROPHIL CYTOPLASMIC ANTIBODY POSITIVE VASCULITIS
     Dosage: RITUXAN INTRAVENOUS INFUSION 100 MG
     Route: 042

REACTIONS (3)
  - Device related sepsis [Fatal]
  - Cytomegalovirus enterocolitis [Unknown]
  - Upper gastrointestinal haemorrhage [Unknown]
